FAERS Safety Report 6463268-6 (Version None)
Quarter: 2009Q4

REPORT INFORMATION
  Report Type: 
  Country: None (occurrence: None)
  Receive Date: 20091130
  Receipt Date: 20090605
  Transmission Date: 20100525
  Serious: Yes (Other)
  Sender: FDA-Public Use
  Company Number: US-AMGEN-QUU350461

PATIENT
  Sex: Female

DRUGS (2)
  1. ENBREL [Suspect]
     Indication: RHEUMATOID ARTHRITIS
     Route: 058
     Dates: start: 20080721
  2. METHOTREXATE [Concomitant]

REACTIONS (8)
  - BACK PAIN [None]
  - CHEILITIS [None]
  - DEPRESSION [None]
  - DRUG INEFFECTIVE [None]
  - HYPOAESTHESIA [None]
  - RHEUMATOID ARTHRITIS [None]
  - STOMATITIS [None]
  - WEIGHT INCREASED [None]
